FAERS Safety Report 23171735 (Version 1)
Quarter: 2023Q4

REPORT INFORMATION
  Report Type: Spontaneous
  Country: US (occurrence: US)
  Receive Date: 20231110
  Receipt Date: 20231110
  Transmission Date: 20240110
  Serious: Yes (Other)
  Sender: FDA-Public Use
  Company Number: US-009507513-2311USA001404

PATIENT
  Age: 42 Year
  Sex: Female

DRUGS (2)
  1. KEYTRUDA [Suspect]
     Active Substance: PEMBROLIZUMAB
     Indication: Hodgkin^s disease refractory
     Dosage: 200 MILLIGRAM, EVERY 21 DAYS (Q3W)
     Route: 065
  2. GEMCITABINE [Suspect]
     Active Substance: GEMCITABINE
     Indication: Hodgkin^s disease refractory
     Dosage: 1000 MILLIGRAM/SQ. METER, DAYS 1 AND (OR) 8, EVERY 21 DAYS (Q3W)

REACTIONS (1)
  - Liver injury [Not Recovered/Not Resolved]
